FAERS Safety Report 5286481-2 (Version None)
Quarter: 2007Q1

REPORT INFORMATION
  Report Type: 
  Country: None (occurrence: None)
  Receive Date: 20070116
  Receipt Date: 20061025
  Transmission Date: 20070707
  Serious: No
  Sender: FDA-Public Use
  Company Number: 2006SP003822

PATIENT
  Age: 81 Year
  Sex: Male
  Weight: 72.5755 kg

DRUGS (4)
  1. LUNESTA [Suspect]
     Indication: INITIAL INSOMNIA
     Dosage: 3 MG;HS;ORAL
     Route: 048
     Dates: start: 20061003, end: 20061022
  2. VALIUM [Concomitant]
  3. ZOLADEX [Concomitant]
  4. ASPIRIN [Concomitant]

REACTIONS (1)
  - INITIAL INSOMNIA [None]
